FAERS Safety Report 8134277-6 (Version None)
Quarter: 2012Q1

REPORT INFORMATION
  Report Type: 
  Country: None (occurrence: None)
  Receive Date: 20120208
  Receipt Date: 20120124
  Transmission Date: 20120608
  Serious: Yes (Life-Threatening, Hospitalization)
  Sender: FDA-Public Use
  Company Number: DIAZ20120002

PATIENT
  Age: 28 Year
  Sex: Male

DRUGS (4)
  1. HEROIN (DIAMORPHINE) (UNKNOWN) [Suspect]
     Indication: SUBSTANCE ABUSE
  2. ALCOHOL (ETHANOL) [Suspect]
     Indication: ALCOHOL ABUSE
     Dosage: ORAL
     Route: 048
  3. COCAINE (COCAINE) (UNKNOWN) [Suspect]
     Indication: SUBSTANCE ABUSE
  4. DIAZEPAM [Suspect]
     Indication: OVERDOSE
     Dosage: ORAL
     Route: 048

REACTIONS (12)
  - OVERDOSE [None]
  - COMA [None]
  - WITHDRAWAL SYNDROME [None]
  - LACTIC ACIDOSIS [None]
  - ASPIRATION [None]
  - ACUTE RESPIRATORY DISTRESS SYNDROME [None]
  - RESTLESSNESS [None]
  - AGITATION [None]
  - SHOCK [None]
  - HYPOXIA [None]
  - HYPERTENSION [None]
  - WEANING FAILURE [None]
